FAERS Safety Report 6067140-5 (Version None)
Quarter: 2009Q1

REPORT INFORMATION
  Report Type: 
  Country: None (occurrence: None)
  Receive Date: 20090121
  Receipt Date: 20080327
  Transmission Date: 20090719
  Serious: Yes (Hospitalization, Other)
  Sender: FDA-Public Use
  Company Number: HQWYE430810JUN04

PATIENT
  Age: 58 Year
  Sex: Female

DRUGS (1)
  1. PREMPHASE (PREMARIN;CYCRIN 14/14) [Suspect]
     Dosage: UNSPECIFIED, ORAL
     Route: 048

REACTIONS (1)
  - BREAST CANCER FEMALE [None]
